FAERS Safety Report 14239002 (Version 2)
Quarter: 2017Q4

REPORT INFORMATION
  Report Type: Spontaneous
  Country: TR (occurrence: TR)
  Receive Date: 20171130
  Receipt Date: 20171207
  Transmission Date: 20180321
  Serious: Yes (Other)
  Sender: FDA-Public Use
  Company Number: TR-ASTRAZENECA-2017SF20779

PATIENT
  Age: 73 Year
  Sex: Male

DRUGS (8)
  1. URIKOLIZ [Concomitant]
     Active Substance: ALLOPURINOL
     Indication: BLOOD URIC ACID INCREASED
  2. AVODART [Concomitant]
     Active Substance: DUTASTERIDE
  3. CRESTOR [Suspect]
     Active Substance: ROSUVASTATIN CALCIUM
     Indication: BLOOD CHOLESTEROL INCREASED
     Dosage: 20 MG TWO DAYS PER WEEK
     Route: 048
  4. NEXIUM [Suspect]
     Active Substance: ESOMEPRAZOLE MAGNESIUM
     Indication: ABDOMINAL DISCOMFORT
     Dosage: 3 DAYS PER WEEK
     Route: 048
  5. GLUCOFAGE [Concomitant]
     Active Substance: METFORMIN HYDROCHLORIDE
  6. DELIX PROTECT [Concomitant]
  7. FLUDEX (INDAPAMIDE) [Concomitant]
     Active Substance: INDAPAMIDE
  8. CIPRALEX [Concomitant]
     Active Substance: ESCITALOPRAM OXALATE
     Indication: DEPRESSION

REACTIONS (18)
  - Thyroid mass [Unknown]
  - Vasoconstriction [Unknown]
  - Gastritis [Unknown]
  - Dry eye [Unknown]
  - Colitis [Unknown]
  - Cyst [Unknown]
  - Cardiovascular disorder [Unknown]
  - Arthritis [Unknown]
  - Xerophthalmia [Unknown]
  - Rash pruritic [Unknown]
  - Deafness [Unknown]
  - Carotid artery stenosis [Unknown]
  - Furuncle [Unknown]
  - Prostatomegaly [Unknown]
  - Bone cyst [Unknown]
  - Ill-defined disorder [Unknown]
  - Haemorrhoids [Unknown]
  - Hepatic steatosis [Unknown]

NARRATIVE: CASE EVENT DATE: 201705
